FAERS Safety Report 12438619 (Version 2)
Quarter: 2016Q3

REPORT INFORMATION
  Report Type: Spontaneous
  Country: US (occurrence: US)
  Receive Date: 20160606
  Receipt Date: 20160725
  Transmission Date: 20161109
  Serious: Yes (Hospitalization, Other)
  Sender: FDA-Public Use
  Company Number: US-SMITH AND NEPHEW, INC-2016SMT00462

PATIENT
  Age: 55 Year
  Sex: Male
  Weight: 120.18 kg

DRUGS (5)
  1. REGRANEX [Suspect]
     Active Substance: BECAPLERMIN
     Indication: DIABETIC FOOT
     Dosage: UNK, 1X/DAY
     Route: 061
     Dates: start: 201604, end: 20160511
  2. LANTUS [Concomitant]
     Active Substance: INSULIN GLARGINE
     Dosage: 30 U, 2X/DAY
  3. HUMALOG [Concomitant]
     Active Substance: INSULIN LISPRO
     Dosage: UNK, 2X/DAY
  4. GEMFIBROZIL. [Concomitant]
     Active Substance: GEMFIBROZIL
  5. LISINOPRIL. [Concomitant]
     Active Substance: LISINOPRIL

REACTIONS (9)
  - Anxiety disorder [Unknown]
  - Debridement [Unknown]
  - Angiogram [Recovered/Resolved]
  - Blood pressure increased [Unknown]
  - Pain in extremity [Unknown]
  - Electrolyte imbalance [Unknown]
  - Osteomyelitis [Unknown]
  - Blood blister [Unknown]
  - Cellulitis [Unknown]

NARRATIVE: CASE EVENT DATE: 2016
